FAERS Safety Report 8956841 (Version 1)
Quarter: 2012Q4

REPORT INFORMATION
  Report Type: 
  Country: BG (occurrence: BG)
  Receive Date: 20121211
  Receipt Date: 20121211
  Transmission Date: 20130627
  Serious: Yes (Hospitalization)
  Sender: FDA-Public Use
  Company Number: PHHY2012BG108781

PATIENT
  Age: 21 Year
  Sex: Female

DRUGS (3)
  1. BACLOFEN [Suspect]
  2. THIORIDAZINE [Suspect]
  3. LISINOPRIL [Suspect]

REACTIONS (11)
  - Poisoning deliberate [Recovered/Resolved]
  - Mucosal dryness [Recovered/Resolved]
  - Suicide attempt [Recovered/Resolved]
  - Dry skin [Recovered/Resolved]
  - Coma [Recovered/Resolved]
  - Somnolence [Recovered/Resolved]
  - Hypotonia [Recovered/Resolved]
  - Hyporeflexia [Recovered/Resolved]
  - Respiratory depression [Recovered/Resolved]
  - Apnoeic attack [Recovered/Resolved]
  - Convulsion [Recovered/Resolved]
